FAERS Safety Report 5485034-0 (Version None)
Quarter: 2007Q4

REPORT INFORMATION
  Report Type: 
  Country: None (occurrence: None)
  Receive Date: 20071015
  Receipt Date: 20071004
  Transmission Date: 20080405
  Serious: Yes (Other)
  Sender: FDA-Public Use
  Company Number: PHBS2007JP16606

PATIENT
  Age: 21 Year
  Sex: Female

DRUGS (2)
  1. ZADITEN [Suspect]
     Dosage: 12 DF, ONCE/SINGLE
     Route: 048
  2. THEO-DUR [Suspect]
     Dosage: 2400 MG, ONCE/SINGLE
     Route: 048

REACTIONS (2)
  - OVERDOSE [None]
  - POISONING [None]
